FAERS Safety Report 4356806-0 (Version None)
Quarter: 2004Q2

REPORT INFORMATION
  Report Type: 
  Country: None (occurrence: None)
  Receive Date: 20040507
  Receipt Date: 20040429
  Transmission Date: 20050107
  Serious: Yes (Other)
  Sender: FDA-Public Use
  Company Number: 2004-04-1814

PATIENT
  Age: 67 Year
  Sex: Male

DRUGS (5)
  1. GENTAMICIN SULFATE [Suspect]
     Indication: POSTOPERATIVE WOUND COMPLICATION
     Dates: start: 20000313, end: 20000316
  2. OXACILLIN [Concomitant]
  3. VANCOMYCIN [Concomitant]
  4. PITUITARY HORMONE, ANTERIOR LOBE [Concomitant]
  5. FUCIDINE CAP [Concomitant]

REACTIONS (3)
  - MENIERE'S DISEASE [None]
  - NERVOUS SYSTEM DISORDER [None]
  - STAPHYLOCOCCAL INFECTION [None]
